FAERS Safety Report 18207889 (Version 1)
Quarter: 2020Q3

REPORT INFORMATION
  Report Type: Spontaneous
  Country: SK (occurrence: SK)
  Receive Date: 20200828
  Receipt Date: 20200828
  Transmission Date: 20201103
  Serious: Yes (Other)
  Sender: FDA-Public Use
  Company Number: SK-MYLANLABS-2020M1072141

PATIENT
  Age: 50 Year
  Sex: Male

DRUGS (6)
  1. IRINOTECAN [Concomitant]
     Active Substance: IRINOTECAN
     Indication: PANCREATIC CARCINOMA METASTATIC
     Dosage: CYCLICAL; AS PART OF THE FOLFIRINOX REGIMEN
     Route: 065
     Dates: start: 201610, end: 201710
  2. FLUOROURACIL. [Concomitant]
     Active Substance: FLUOROURACIL
     Indication: PANCREATIC CARCINOMA METASTATIC
     Dosage: CYCLICAL; AS PART OF THE FOLFIRINOX REGIMEN
     Route: 065
     Dates: start: 201610, end: 201710
  3. PEGFILGRASTIM [Concomitant]
     Active Substance: PEGFILGRASTIM
     Indication: PROPHYLAXIS
     Dosage: UNK
     Route: 065
     Dates: start: 201610
  4. OXALIPLATIN. [Suspect]
     Active Substance: OXALIPLATIN
     Indication: PANCREATIC CARCINOMA METASTATIC
     Dosage: CYCLICAL; AS PART OF THE FOLFIRINOX REGIMEN
     Route: 065
     Dates: start: 201610
  5. CAPECITABINE. [Suspect]
     Active Substance: CAPECITABINE
     Indication: PANCREATIC CARCINOMA METASTATIC
     Dosage: CYCLICAL
     Route: 065
  6. FOLINIC ACID [Concomitant]
     Active Substance: LEUCOVORIN
     Indication: PANCREATIC CARCINOMA METASTATIC
     Dosage: CYCLICAL; AS PART OF THE FOLFIRINOX REGIMEN
     Route: 065
     Dates: start: 201610, end: 201710

REACTIONS (2)
  - Angina pectoris [Unknown]
  - Neurotoxicity [Recovering/Resolving]
